FAERS Safety Report 10493101 (Version 1)
Quarter: 2014Q4

REPORT INFORMATION
  Report Type: Spontaneous
  Country: US (occurrence: US)
  Receive Date: 20141002
  Receipt Date: 20141002
  Transmission Date: 20150528
  Serious: No
  Sender: FDA-Public Use
  Company Number: US-GLAXOSMITHKLINE-A1079046A

PATIENT
  Age: 82 Year
  Sex: Male

DRUGS (13)
  1. TAMSULOSIN [Concomitant]
     Active Substance: TAMSULOSIN
  2. SPIRIVA [Concomitant]
     Active Substance: TIOTROPIUM BROMIDE MONOHYDRATE
  3. TRAVATAN [Concomitant]
     Active Substance: TRAVOPROST
  4. OXYGEN. [Concomitant]
     Active Substance: OXYGEN
  5. TRIAMTEREN + HYDROCHLOROTHIAZIDE [Concomitant]
  6. LUPRON [Concomitant]
     Active Substance: LEUPROLIDE ACETATE
  7. VITAMIN D [Concomitant]
     Active Substance: CHOLECALCIFEROL
  8. DIAZEPAM. [Concomitant]
     Active Substance: DIAZEPAM
  9. ADVAIR HFA [Suspect]
     Active Substance: FLUTICASONE PROPIONATE\SALMETEROL XINAFOATE
     Indication: CHRONIC OBSTRUCTIVE PULMONARY DISEASE
     Dosage: 1PUFF TWICE PER DAY
     Route: 065
     Dates: start: 2009
  10. GABAPENTIN. [Concomitant]
     Active Substance: GABAPENTIN
  11. FLUTICASONE NASAL SPRAY [Concomitant]
     Active Substance: FLUTICASONE\FLUTICASONE PROPIONATE
  12. PROAIR HFA [Concomitant]
     Active Substance: ALBUTEROL SULFATE
  13. ALBUTEROL. [Concomitant]
     Active Substance: ALBUTEROL

REACTIONS (1)
  - Dyspnoea [Recovered/Resolved]

NARRATIVE: CASE EVENT DATE: 20140620
